FAERS Safety Report 4511272-7 (Version None)
Quarter: 2004Q4

REPORT INFORMATION
  Report Type: 
  Country: None (occurrence: None)
  Receive Date: 20041123
  Receipt Date: 20041123
  Transmission Date: 20050328
  Serious: No
  Sender: FDA-Public Use
  Company Number: None

PATIENT
  Age: 41 Year
  Sex: Male
  Weight: 81.6475 kg

DRUGS (3)
  1. CORICIDIN D SRT [Suspect]
     Indication: SINUSITIS
     Dosage: BID ORAL
     Route: 048
     Dates: start: 19960901, end: 19960901
  2. DIMETAPP [Concomitant]
  3. BENADRYL [Concomitant]

REACTIONS (6)
  - BLOOD PRESSURE INCREASED [None]
  - HAEMORRHAGIC STROKE [None]
  - HEADACHE [None]
  - HEMIPARESIS [None]
  - INCOHERENT [None]
  - VISUAL DISTURBANCE [None]
